FAERS Safety Report 8678916 (Version 3)
Quarter: 2012Q4

REPORT INFORMATION
  Report Type: 
  Country: JP (occurrence: JP)
  Receive Date: 20120723
  Receipt Date: 20121001
  Transmission Date: 20130627
  Serious: Yes (Hospitalization)
  Sender: FDA-Public Use
  Company Number: JP-GLAXOSMITHKLINE-B0816028A

PATIENT
  Age: 70 Year
  Sex: Female

DRUGS (2)
  1. FLUTIDE [Suspect]
     Indication: ASTHMA
     Route: 055
  2. FLUTIDE [Suspect]
     Indication: ASTHMA
     Route: 055

REACTIONS (2)
  - Asthma [Recovered/Resolved]
  - Product quality issue [Unknown]
